FAERS Safety Report 5410881-0 (Version None)
Quarter: 2007Q3

REPORT INFORMATION
  Report Type: 
  Country: None (occurrence: None)
  Receive Date: 20070809
  Receipt Date: 20070809
  Transmission Date: 20080115
  Serious: Yes (Hospitalization)
  Sender: FDA-Public Use
  Company Number: None

PATIENT
  Age: 75 Year
  Sex: Female

DRUGS (8)
  1. REMERON [Suspect]
     Indication: ANXIETY
     Dosage: 15 MG DAILY PO
     Route: 048
  2. REMERON [Suspect]
     Indication: DEPRESSION
     Dosage: 15 MG DAILY PO
     Route: 048
  3. TYLENOL (CAPLET) [Concomitant]
  4. ISOPTO TEARS [Concomitant]
  5. SUBCUTANEOUS HEPARIN [Concomitant]
  6. INSULIN SLIDING SCALE [Concomitant]
  7. METOPROLOL SUCCINATE [Concomitant]
  8. ASCORBIC ACID [Concomitant]

REACTIONS (2)
  - PRURITUS GENERALISED [None]
  - RASH GENERALISED [None]
